FAERS Safety Report 16759984 (Version 1)
Quarter: 2019Q3

REPORT INFORMATION
  Report Type: Spontaneous
  Country: CA (occurrence: CA)
  Receive Date: 20190830
  Receipt Date: 20190830
  Transmission Date: 20191005
  Serious: Yes (Other)
  Sender: FDA-Public Use
  Company Number: CA-PFIZER INC-2019371396

PATIENT
  Age: 59 Year
  Sex: Female
  Weight: 82 kg

DRUGS (8)
  1. DETROL LA [Suspect]
     Active Substance: TOLTERODINE TARTRATE
     Indication: URINARY TRACT INFECTION
     Dosage: 4 MG, UNK
     Route: 048
  2. ROSUVASTATIN. [Concomitant]
     Active Substance: ROSUVASTATIN
     Dosage: UNK
  3. RAMIPRIL. [Concomitant]
     Active Substance: RAMIPRIL
     Dosage: UNK
  4. CO-VENLAFAXINE [Concomitant]
     Dosage: UNK
  5. LEVEMIR [Concomitant]
     Active Substance: INSULIN DETEMIR
     Dosage: UNK
     Route: 058
  6. NOVORAPID [Concomitant]
     Active Substance: INSULIN ASPART
     Dosage: UNK
  7. JANUMET [Concomitant]
     Active Substance: METFORMIN HYDROCHLORIDE\SITAGLIPTIN PHOSPHATE
     Dosage: UNK
  8. LEVOTHYROXINE. [Concomitant]
     Active Substance: LEVOTHYROXINE
     Dosage: UNK

REACTIONS (4)
  - Off label use [Unknown]
  - Blood glucose fluctuation [Not Recovered/Not Resolved]
  - Eye disorder [Not Recovered/Not Resolved]
  - Product use in unapproved indication [Unknown]
